FAERS Safety Report 6110330-3 (Version None)
Quarter: 2009Q1

REPORT INFORMATION
  Report Type: 
  Country: None (occurrence: None)
  Receive Date: 20090310
  Receipt Date: 20090226
  Transmission Date: 20090719
  Serious: Yes (Hospitalization, Other)
  Sender: FDA-Public Use
  Company Number: JP-PFIZER INC-2009159685

PATIENT

DRUGS (7)
  1. NORVASC [Suspect]
     Indication: HYPERTENSION
     Dosage: 5 MG, 1X/DAY
     Dates: start: 20081215, end: 20090110
  2. ASPIRIN [Concomitant]
     Route: 048
  3. AMARYL [Concomitant]
     Route: 048
  4. ACTOS [Concomitant]
     Route: 048
  5. FRANDOL [Concomitant]
     Route: 062
  6. NITROPEN [Concomitant]
     Route: 060
  7. CRESTOR [Concomitant]
     Route: 048

REACTIONS (2)
  - INTERSTITIAL LUNG DISEASE [None]
  - RASH [None]
